FAERS Safety Report 4330315-7 (Version None)
Quarter: 2004Q1

REPORT INFORMATION
  Report Type: 
  Country: None (occurrence: None)
  Receive Date: 20040329
  Receipt Date: 20040317
  Transmission Date: 20041129
  Serious: Yes (Hospitalization, Other)
  Sender: FDA-Public Use
  Company Number: 033-1343-M0200004

PATIENT
  Sex: Male

DRUGS (6)
  1. VIRACEPT [Suspect]
     Indication: HIV INFECTION
     Dosage: 1250 MG (DAILY), ORAL
     Route: 048
     Dates: start: 20001101
  2. DIDANOSINE (DIDANOSINE) [Suspect]
     Indication: HIV INFECTION
     Dosage: 400 MG (DAILY), ORAL
     Route: 048
     Dates: start: 20001101
  3. ZIDOVUDINE [Suspect]
     Indication: HIV INFECTION
     Dosage: ORAL
     Route: 048
     Dates: start: 20001101
  4. ZIDOVUDINE [Suspect]
     Indication: ILL-DEFINED DISORDER
     Dosage: ORAL
     Route: 048
     Dates: start: 20010101
  5. BACTRIM [Suspect]
     Indication: ILL-DEFINED DISORDER
  6. IRON (IRON) [Concomitant]

REACTIONS (6)
  - BLOOD PYRUVIC ACID DECREASED [None]
  - CAFE AU LAIT SPOTS [None]
  - DEVELOPMENTAL DELAY [None]
  - GLAUCOMA CONGENITAL [None]
  - HYPOKINESIA [None]
  - MATERNAL DRUGS AFFECTING FOETUS [None]
